FAERS Safety Report 12841341 (Version 1)
Quarter: 2016Q4

REPORT INFORMATION
  Report Type: Spontaneous
  Country: US (occurrence: US)
  Receive Date: 20161012
  Receipt Date: 20161012
  Transmission Date: 20170207
  Serious: Yes (Other)
  Sender: FDA-Public Use
  Company Number: US-APOPHARMA USA, INC.-2016AP012772

PATIENT
  Age: 1 Year

DRUGS (2)
  1. ALKERAN [Suspect]
     Active Substance: MELPHALAN
     Indication: RETINOBLASTOMA
     Dosage: 4 MG, UNKNOWN
     Route: 013
  2. ALKERAN [Suspect]
     Active Substance: MELPHALAN
     Dosage: 3 MG, UNKNOWN
     Route: 013

REACTIONS (1)
  - Eye haemorrhage [Not Recovered/Not Resolved]
